FAERS Safety Report 9482347 (Version 1)
Quarter: 2013Q3

REPORT INFORMATION
  Report Type: Spontaneous
  Country: IT (occurrence: None)
  Receive Date: 20130822
  Receipt Date: 20130822
  Transmission Date: 20140515
  Serious: Yes (Hospitalization)
  Sender: FDA-Public Use
  Company Number: GER/ITL/13/0034101

PATIENT
  Age: 88 Year
  Sex: Female

DRUGS (9)
  1. OLANZAPINE (OLANZAPINE) [Suspect]
     Indication: PRODUCT USED FOR UNKNOWN INDICATION
     Route: 048
     Dates: start: 20130701, end: 20130726
  2. LASIX (FUROSEMIDE) [Concomitant]
  3. LANOXIN (DIGOXIN) [Concomitant]
  4. CARDIOASPIRIN (ACETYLSALICYLIC ACID) [Concomitant]
  5. GLIBOMET (GLIBOMET) [Concomitant]
  6. RIVOTRIL (CLONAZEPAM) [Concomitant]
  7. FOLINA (FOLIC ACID) [Concomitant]
  8. OMEPRAZOLE (OMEPRAZOLE) [Concomitant]
  9. MESOGLYCAN SODIUM (MESOGLUCANE SODIUM) [Concomitant]

REACTIONS (4)
  - Alanine aminotransferase increased [None]
  - Blood pressure increased [None]
  - Blood glucose increased [None]
  - Sopor [None]
